FAERS Safety Report 20325116 (Version 1)
Quarter: 2022Q1

REPORT INFORMATION
  Report Type: Spontaneous
  Country: SE (occurrence: SE)
  Receive Date: 20220111
  Receipt Date: 20220111
  Transmission Date: 20220424
  Serious: Yes (Disabling)
  Sender: FDA-Public Use
  Company Number: SE-ALVOGEN-2022-ALVOGEN-118121

PATIENT
  Age: 35 Year
  Sex: Female

DRUGS (1)
  1. FLUOXETINE [Suspect]
     Active Substance: FLUOXETINE HYDROCHLORIDE
     Indication: Post-traumatic stress disorder
     Route: 065
     Dates: start: 20210130, end: 20210219

REACTIONS (1)
  - Myalgia [Unknown]
